FAERS Safety Report 5042654-5 (Version None)
Quarter: 2006Q2

REPORT INFORMATION
  Report Type: 
  Country: None (occurrence: None)
  Receive Date: 20060627
  Receipt Date: 20060608
  Transmission Date: 20061013
  Serious: Yes (Hospitalization)
  Sender: FDA-Public Use
  Company Number: BR200603002889

PATIENT
  Age: 82 Year
  Sex: Female
  Weight: 46 kg

DRUGS (6)
  1. B3D-US-GHBZ GLUCOCORTICOID INDUCED OSTEO (TERIPARATIDE) PEN, DISPOSABL [Suspect]
     Indication: OSTEOPOROSIS
     Dosage: 20 UG, DAILY (1/D), SUBCUTANEOUS
     Route: 058
     Dates: start: 20040209, end: 20060310
  2. B3D-US-GHBZ GLUCOCORTICOID INDUCED OSTEO (*PLACEBO) [Suspect]
     Indication: OSTEOPOROSIS
     Dosage: 10 MG, DAILY (1/D), ORAL
     Route: 048
     Dates: start: 20040209, end: 20060310
  3. METHOTREXATE [Concomitant]
  4. FOLIC ACID [Concomitant]
  5. TENORETIC 100 [Concomitant]
  6. PREDNISONE TAB [Concomitant]

REACTIONS (4)
  - BACK PAIN [None]
  - GASTRITIS [None]
  - GENERAL PHYSICAL HEALTH DETERIORATION [None]
  - PARAESTHESIA [None]
